FAERS Safety Report 15532380 (Version 2)
Quarter: 2018Q4

REPORT INFORMATION
  Report Type: Spontaneous
  Country: CA (occurrence: CA)
  Receive Date: 20181019
  Receipt Date: 20181129
  Transmission Date: 20190205
  Serious: Yes (Other)
  Sender: FDA-Public Use
  Company Number: CA-GLAXOSMITHKLINE-CA2018GSK189994

PATIENT
  Age: 45 Year
  Sex: Female

DRUGS (1)
  1. IMITREX [Suspect]
     Active Substance: SUMATRIPTAN SUCCINATE
     Indication: MIGRAINE
     Dosage: 100 MG, UNK
     Route: 048
     Dates: start: 2008

REACTIONS (4)
  - Glaucoma [Unknown]
  - Blindness [Unknown]
  - Cataract [Unknown]
  - Visual impairment [Unknown]

NARRATIVE: CASE EVENT DATE: 20180515
